FAERS Safety Report 6785371-3 (Version None)
Quarter: 2010Q2

REPORT INFORMATION
  Report Type: 
  Country: None (occurrence: None)
  Receive Date: 20100623
  Receipt Date: 20100611
  Transmission Date: 20101027
  Serious: No
  Sender: FDA-Public Use
  Company Number: US-BIOGENIDEC-2010BI020008

PATIENT
  Age: 48 Year
  Sex: Female

DRUGS (2)
  1. TYSABRI [Suspect]
     Indication: MULTIPLE SCLEROSIS
     Route: 042
     Dates: start: 20071107
  2. BENADRYL [Concomitant]
     Indication: PREMEDICATION

REACTIONS (4)
  - ABASIA [None]
  - DRUG INEFFECTIVE [None]
  - FOOD CRAVING [None]
  - SOMNOLENCE [None]
